FAERS Safety Report 20206592 (Version 1)
Quarter: 2021Q4

REPORT INFORMATION
  Report Type: Spontaneous
  Country: HR (occurrence: HR)
  Receive Date: 20211220
  Receipt Date: 20211220
  Transmission Date: 20220303
  Serious: Yes (Other)
  Sender: FDA-Public Use
  Company Number: None

PATIENT
  Age: 59 Year
  Sex: Male
  Weight: 80 kg

DRUGS (4)
  1. IBUPROFEN [Suspect]
     Active Substance: IBUPROFEN
     Indication: Product used for unknown indication
     Dosage: 8 GRAM, QD (2 BLISTERA BRUFENA OF 400 MG)
     Route: 048
     Dates: start: 20210702, end: 20210702
  2. FLURAZEPAM HYDROCHLORIDE [Suspect]
     Active Substance: FLURAZEPAM HYDROCHLORIDE
     Indication: Product used for unknown indication
     Dosage: 300 MILLIGRAM, QD (1 BLISTER FLUZEPAMA OD 30 MG)
     Route: 048
     Dates: start: 20210702, end: 20210702
  3. PRAZINE (PROMAZINE HYDROCHLORIDE) [Suspect]
     Active Substance: PROMAZINE HYDROCHLORIDE
     Indication: Product used for unknown indication
     Dosage: 7 BLISTERS OF PRAZINA (PROMAZIN) UNKNOWN STRENGTH; EACH BLISTER HAS 10 TABLETS.
     Route: 048
     Dates: start: 20210702, end: 20210702
  4. DIAZEPAM [Suspect]
     Active Substance: DIAZEPAM
     Indication: Product used for unknown indication
     Dosage: 4 BLISTERS OF APAURIN (DIAZEPAM) UNKNOWN STRENGTH; EACH BLISTER HAS 10 TABLETS.
     Route: 048
     Dates: start: 20210702, end: 20210702

REACTIONS (2)
  - Suicide attempt [Unknown]
  - Intentional overdose [Unknown]

NARRATIVE: CASE EVENT DATE: 20210702
